FAERS Safety Report 4038867 (Version 19)
Quarter: 2014Q4

REPORT INFORMATION
  Report Type: Spontaneous
  Country: US (occurrence: US)
  Receive Date: 20031208
  Receipt Date: 20141111
  Transmission Date: 20150529
  Serious: Yes (Hospitalization, Other)
  Sender: FDA-Public Use
  Company Number: US-ROCHE-353435

PATIENT
  Age: 28 Year
  Sex: Male
  Weight: 98.9 kg

DRUGS (17)
  1. ACCUTANE [Suspect]
     Active Substance: ISOTRETINOIN
     Route: 048
  2. ACCUTANE [Suspect]
     Active Substance: ISOTRETINOIN
     Route: 048
  3. RELAFEN [Concomitant]
     Active Substance: NABUMETONE
  4. XANAX [Concomitant]
     Active Substance: ALPRAZOLAM
     Route: 065
  5. PRILOSEC [Concomitant]
     Active Substance: OMEPRAZOLE MAGNESIUM
  6. PREVACID [Concomitant]
     Active Substance: LANSOPRAZOLE
     Indication: IRRITABLE BOWEL SYNDROME
     Route: 048
  7. ACCUTANE [Suspect]
     Active Substance: ISOTRETINOIN
     Route: 048
  8. PREDNISONE. [Concomitant]
     Active Substance: PREDNISONE
  9. ACCUTANE [Suspect]
     Active Substance: ISOTRETINOIN
     Indication: ACNE
     Route: 048
  10. IMITREX [Concomitant]
     Active Substance: SUMATRIPTAN\SUMATRIPTAN SUCCINATE
     Indication: MIGRAINE
  11. ACCUTANE [Suspect]
     Active Substance: ISOTRETINOIN
     Route: 048
  12. BUSPAR [Concomitant]
     Active Substance: BUSPIRONE HYDROCHLORIDE
     Indication: ANXIETY
     Dosage: DOSAGE EGIMEN REPORTED AS: VARIES.
     Route: 048
  13. PAMINE [Concomitant]
     Active Substance: METHSCOPOLAMINE BROMIDE
     Indication: IRRITABLE BOWEL SYNDROME
     Route: 048
  14. PREDNISONE. [Concomitant]
     Active Substance: PREDNISONE
  15. LIPITOR [Concomitant]
     Active Substance: ATORVASTATIN CALCIUM
  16. TYLENOL PM [Concomitant]
     Active Substance: ACETAMINOPHEN\DIPHENHYDRAMINE
     Indication: INSOMNIA
     Route: 048
  17. RITALIN [Concomitant]
     Active Substance: METHYLPHENIDATE HYDROCHLORIDE
     Indication: ATTENTION DEFICIT/HYPERACTIVITY DISORDER
     Route: 048

REACTIONS (47)
  - Left ventricular hypertrophy [Not Recovered/Not Resolved]
  - Dyspnoea [Recovered/Resolved]
  - Heart injury [Unknown]
  - Blood triglycerides increased [Recovered/Resolved]
  - Visual impairment [Unknown]
  - Hypertension [Not Recovered/Not Resolved]
  - Vomiting [Unknown]
  - Sleep apnoea syndrome [Unknown]
  - Mitral valve incompetence [Not Recovered/Not Resolved]
  - Coronary artery disease [Unknown]
  - Left ventricular dysfunction [Recovered/Resolved]
  - Hypotension [Unknown]
  - Hypoaesthesia [Not Recovered/Not Resolved]
  - Crohn^s disease [Unknown]
  - Cardiomyopathy [Recovering/Resolving]
  - Hypokinesia [Unknown]
  - Gastric disorder [Unknown]
  - Anxiety [Unknown]
  - Enchondroma [Unknown]
  - Left atrial dilatation [Not Recovered/Not Resolved]
  - Myocardial ischaemia [Unknown]
  - Angina unstable [Recovering/Resolving]
  - Blood cholesterol increased [Recovered/Resolved]
  - Panic attack [Unknown]
  - Electrocardiogram ST-T segment abnormal [Recovering/Resolving]
  - Syncope [Recovered/Resolved]
  - Loss of consciousness [Unknown]
  - Haemoglobin decreased [Recovering/Resolving]
  - Diarrhoea [Not Recovered/Not Resolved]
  - Irritable bowel syndrome [Unknown]
  - Myocardial infarction [Unknown]
  - Arthralgia [Unknown]
  - Dry skin [Recovered/Resolved]
  - Cardiomegaly [Unknown]
  - Fatigue [Unknown]
  - Cholelithiasis [Recovered/Resolved]
  - Arteriosclerosis [Recovered/Resolved]
  - Chest pain [Recovered/Resolved]
  - Depression [Unknown]
  - Myalgia [Unknown]
  - Asthma [Unknown]
  - Hyperhidrosis [Recovered/Resolved]
  - Palpitations [Unknown]
  - Headache [Unknown]
  - Large intestine polyp [Unknown]
  - Hidradenitis [Not Recovered/Not Resolved]
  - Dizziness [Unknown]

NARRATIVE: CASE EVENT DATE: 20000124
